FAERS Safety Report 4970231-0 (Version None)
Quarter: 2006Q2

REPORT INFORMATION
  Report Type: 
  Country: None (occurrence: None)
  Receive Date: 20060406
  Receipt Date: 20060316
  Transmission Date: 20061013
  Serious: Yes (Hospitalization, Other)
  Sender: FDA-Public Use
  Company Number: US200603005523

PATIENT
  Age: 49 Year
  Sex: Male
  Weight: 91.6 kg

DRUGS (7)
  1. ZYPREXA [Suspect]
     Indication: BIPOLAR DISORDER
     Dosage: SEE IMAGE
     Route: 048
     Dates: start: 20010101, end: 20021001
  2. ZYPREXA [Suspect]
     Indication: BIPOLAR DISORDER
     Dosage: SEE IMAGE
     Route: 048
     Dates: start: 20050101, end: 20050101
  3. ZYPREXA [Suspect]
     Indication: BIPOLAR DISORDER
     Dosage: SEE IMAGE
     Route: 048
     Dates: start: 20030314, end: 20050715
  4. ZYPREXA [Suspect]
     Indication: BIPOLAR DISORDER
     Dosage: SEE IMAGE
     Route: 048
     Dates: start: 19980301, end: 20051001
  5. RISPERIDONE [Concomitant]
  6. SERTRALINE [Concomitant]
  7. ARIPIPRAZOLE [Concomitant]

REACTIONS (9)
  - ABSCESS [None]
  - BLOOD TRIGLYCERIDES INCREASED [None]
  - CELLULITIS [None]
  - DIABETES MELLITUS NON-INSULIN-DEPENDENT [None]
  - INCREASED APPETITE [None]
  - METABOLIC SYNDROME [None]
  - OSTEOMYELITIS [None]
  - STAPHYLOCOCCAL INFECTION [None]
  - WEIGHT INCREASED [None]
